FAERS Safety Report 18790530 (Version 1)
Quarter: 2021Q1

REPORT INFORMATION
  Report Type: Spontaneous
  Country: US (occurrence: US)
  Receive Date: 20210126
  Receipt Date: 20210126
  Transmission Date: 20210419
  Serious: Yes (Other)
  Sender: FDA-Public Use
  Company Number: US-BAYER-2021-032416

PATIENT
  Age: 28 Year
  Sex: Female

DRUGS (1)
  1. MIRENA [Suspect]
     Active Substance: LEVONORGESTREL
     Indication: MENORRHAGIA
     Dosage: 20 ?G PER DAY CONTINUOUSLY
     Route: 015
     Dates: start: 20201120, end: 20201124

REACTIONS (3)
  - Tachycardia [Not Recovered/Not Resolved]
  - Procedural dizziness [Not Recovered/Not Resolved]
  - Idiopathic intracranial hypertension [Not Recovered/Not Resolved]

NARRATIVE: CASE EVENT DATE: 20201121
